FAERS Safety Report 8238845-2 (Version None)
Quarter: 2012Q1

REPORT INFORMATION
  Report Type: 
  Country: None (occurrence: None)
  Receive Date: 20120327
  Receipt Date: 20120316
  Transmission Date: 20120608
  Serious: Yes (Hospitalization)
  Sender: FDA-Public Use
  Company Number: FR-FRI-1000011613

PATIENT
  Sex: Female

DRUGS (2)
  1. ESCITALOPRAM [Suspect]
     Indication: DEPRESSION
     Dosage: 10 MG
     Route: 048
     Dates: start: 20090501, end: 20090811
  2. XANAX [Suspect]
     Indication: DEPRESSION
     Route: 048
     Dates: start: 20090501

REACTIONS (1)
  - TRANSAMINASES INCREASED [None]
